FAERS Safety Report 12134418 (Version 3)
Quarter: 2016Q1

REPORT INFORMATION
  Report Type: Report from Study
  Country: US (occurrence: US)
  Receive Date: 20160301
  Receipt Date: 20160324
  Transmission Date: 20160526
  Serious: Yes (Other)
  Sender: FDA-Public Use
  Company Number: US-BAYER-2016-029795

PATIENT
  Age: 68 Year
  Sex: Male

DRUGS (2)
  1. STIVARGA [Suspect]
     Active Substance: REGORAFENIB
     Indication: GASTROINTESTINAL STROMAL CANCER
     Dosage: 40 MG, QD
     Route: 048
     Dates: start: 20160307, end: 20160309
  2. STIVARGA [Suspect]
     Active Substance: REGORAFENIB
     Indication: GASTROINTESTINAL STROMAL CANCER
     Dosage: 160 MG, QD
     Route: 048
     Dates: start: 20160211, end: 20160221

REACTIONS (35)
  - Diarrhoea [None]
  - Rash [None]
  - Feeding disorder [None]
  - Abdominal pain [None]
  - Hepatic enzyme increased [None]
  - Rectal haemorrhage [Recovering/Resolving]
  - Confusional state [None]
  - Constipation [None]
  - Muscle spasms [None]
  - Nausea [Not Recovered/Not Resolved]
  - Headache [Not Recovered/Not Resolved]
  - Blood pressure increased [Not Recovered/Not Resolved]
  - Chest discomfort [Recovered/Resolved]
  - Stomatitis [Not Recovered/Not Resolved]
  - Blood bilirubin increased [Recovered/Resolved]
  - Weight decreased [Not Recovered/Not Resolved]
  - Abdominal pain upper [Not Recovered/Not Resolved]
  - Pain in extremity [None]
  - Bone pain [None]
  - Faeces discoloured [Recovering/Resolving]
  - Ear pain [Not Recovered/Not Resolved]
  - Abasia [None]
  - Flatulence [None]
  - Fatigue [None]
  - Condition aggravated [None]
  - Nasal ulcer [Not Recovered/Not Resolved]
  - Dysphonia [Not Recovered/Not Resolved]
  - Asthenia [None]
  - Pain in extremity [Not Recovered/Not Resolved]
  - Pain in extremity [None]
  - Gait disturbance [Not Recovered/Not Resolved]
  - Dyspnoea [Not Recovered/Not Resolved]
  - Rash macular [None]
  - Haemoglobin decreased [Recovering/Resolving]
  - Intentional product use issue [None]

NARRATIVE: CASE EVENT DATE: 2016
